FAERS Safety Report 5355329-X (Version None)
Quarter: 2007Q2

REPORT INFORMATION
  Report Type: 
  Country: None (occurrence: None)
  Receive Date: 20070601
  Receipt Date: 20070417
  Transmission Date: 20071010
  Serious: No
  Sender: FDA-Public Use
  Company Number: S07-USA-01645-01

PATIENT
  Age: 64 Year
  Sex: Female

DRUGS (4)
  1. CAMPRAL [Suspect]
     Indication: ALCOHOLISM
     Dosage: 666  MG TID PO
     Route: 048
     Dates: start: 20070317
  2. DEPASONE [Concomitant]
  3. BLOOD PRESSURE MEDICATION (NOS) [Concomitant]
  4. SYNTHROID [Concomitant]

REACTIONS (1)
  - DIARRHOEA [None]
